FAERS Safety Report 11122003 (Version 1)
Quarter: 2015Q2

REPORT INFORMATION
  Report Type: Spontaneous
  Country: US (occurrence: None)
  Receive Date: 20150518
  Receipt Date: 20150518
  Transmission Date: 20150821
  Serious: No
  Sender: FDA-Public Use
  Company Number: None

PATIENT
  Age: 62 Year
  Sex: Female
  Weight: 68.04 kg

DRUGS (4)
  1. MINERAL [Concomitant]
  2. RESTASIS [Suspect]
     Active Substance: CYCLOSPORINE
     Indication: DRY EYE
     Dosage: INTO THE EYE
  3. NATURE-THROID [Concomitant]
     Active Substance: THYROID, PORCINE
  4. MULTIV-VITAMIN [Concomitant]

REACTIONS (3)
  - Tinnitus [None]
  - Gastrooesophageal reflux disease [None]
  - Rash generalised [None]

NARRATIVE: CASE EVENT DATE: 20150517
